FAERS Safety Report 15109030 (Version 2)
Quarter: 2019Q1

REPORT INFORMATION
  Report Type: Report from Study
  Country: US (occurrence: US)
  Receive Date: 20180705
  Receipt Date: 20190221
  Transmission Date: 20190417
  Serious: No
  Sender: FDA-Public Use
  Company Number: PHEH2018US019387

PATIENT
  Sex: Male

DRUGS (2)
  1. GILENYA [Suspect]
     Active Substance: FINGOLIMOD HYDROCHLORIDE
     Indication: MULTIPLE SCLEROSIS
     Dosage: 0.5 MG, QD
     Route: 048
     Dates: start: 20180307
  2. GILENYA [Suspect]
     Active Substance: FINGOLIMOD HYDROCHLORIDE
     Dosage: 0.5 MG, QD
     Route: 048

REACTIONS (13)
  - Fatigue [Unknown]
  - Bladder disorder [Unknown]
  - Vision blurred [Unknown]
  - Pain [Unknown]
  - Depression [Not Recovered/Not Resolved]
  - Depressed mood [Unknown]
  - Decreased interest [Unknown]
  - Paraesthesia [Unknown]
  - Visual impairment [Unknown]
  - Dizziness [Unknown]
  - Diarrhoea [Unknown]
  - Pruritus [Unknown]
  - Tinnitus [Not Recovered/Not Resolved]
